FAERS Safety Report 8808586 (Version 2)
Quarter: 2012Q4

REPORT INFORMATION
  Report Type: 
  Country: US (occurrence: US)
  Receive Date: 20120926
  Receipt Date: 20121018
  Transmission Date: 20130627
  Serious: No
  Sender: FDA-Public Use
  Company Number: US-PFIZER INC-2012236926

PATIENT
  Age: 44 Year
  Sex: Male

DRUGS (1)
  1. CAMPTOSAR [Suspect]
     Indication: PANCREATIC CARCINOMA
     Dosage: 340 mg, cyclic, every 2 weeks
     Route: 042

REACTIONS (2)
  - Disease progression [Unknown]
  - Pancreatic carcinoma [Unknown]
